FAERS Safety Report 18278936 (Version 3)
Quarter: 2020Q3

REPORT INFORMATION
  Report Type: Spontaneous
  Country: US (occurrence: US)
  Receive Date: 20200917
  Receipt Date: 20200925
  Transmission Date: 20201103
  Serious: No
  Sender: FDA-Public Use
  Company Number: US-009507513-2009USA003711

PATIENT
  Sex: Female

DRUGS (2)
  1. LOTRISONE [Suspect]
     Active Substance: BETAMETHASONE DIPROPIONATE\CLOTRIMAZOLE
     Dosage: UNK
     Route: 061
  2. CLOTRIMAZOLE. [Suspect]
     Active Substance: CLOTRIMAZOLE
     Dosage: UNK
     Route: 061

REACTIONS (5)
  - Overweight [Unknown]
  - Product availability issue [Unknown]
  - Skin irritation [Unknown]
  - Rash [Unknown]
  - Drug ineffective [Unknown]
